FAERS Safety Report 7574555-2 (Version None)
Quarter: 2011Q2

REPORT INFORMATION
  Report Type: 
  Country: None (occurrence: None)
  Receive Date: 20110627
  Receipt Date: 20110607
  Transmission Date: 20111010
  Serious: Yes (Other)
  Sender: FDA-Public Use
  Company Number: US-BAYER-2011-049700

PATIENT
  Age: 57 Year
  Sex: Female
  Weight: 52 kg

DRUGS (2)
  1. CEPHALEXIN [Concomitant]
  2. PHILLIPS' MILK OF MAGNESIA LIQUID ORIGINAL [Suspect]
     Indication: CONSTIPATION
     Dosage: CONSUMER TOOK 2 TABLESPOON ONCE AT 9PM. BOTTLE COUNT 4OZ
     Route: 048
     Dates: start: 20110606

REACTIONS (1)
  - RECTAL HAEMORRHAGE [None]
